FAERS Safety Report 18243354 (Version 2)
Quarter: 2020Q3

REPORT INFORMATION
  Report Type: Report from Study
  Country: US (occurrence: US)
  Receive Date: 20200908
  Receipt Date: 20200915
  Transmission Date: 20201103
  Serious: Yes (Hospitalization, Other)
  Sender: FDA-Public Use
  Company Number: US-BAUSCH-BL-2019-063061

PATIENT
  Age: 77 Year
  Sex: Female

DRUGS (6)
  1. XIFAXAN [Suspect]
     Active Substance: RIFAXIMIN
     Indication: HEPATIC CIRRHOSIS
     Dosage: STARTED 4 TO 5 YEARS AGO (FROM 03/SEP/2020), LAST DOSE COUPLE OF MONTHS AGO (FROM 22/NOV/2019)
     Route: 048
     Dates: end: 2019
  2. XIFAXAN [Suspect]
     Active Substance: RIFAXIMIN
     Dosage: LAST DOSE ABOUT 2 WEEKS AGO (FROM FU1 REPORT)
     Route: 048
     Dates: end: 202008
  3. LACTULOSE. [Concomitant]
     Active Substance: LACTULOSE
     Indication: PRODUCT USED FOR UNKNOWN INDICATION
     Route: 048
  4. INSULIN [Concomitant]
     Active Substance: INSULIN NOS
     Indication: PRODUCT USED FOR UNKNOWN INDICATION
     Route: 058
  5. GABAPENTIN. [Concomitant]
     Active Substance: GABAPENTIN
     Indication: PRODUCT USED FOR UNKNOWN INDICATION
     Route: 048
  6. JANUVIA [Concomitant]
     Active Substance: SITAGLIPTIN PHOSPHATE
     Indication: PRODUCT USED FOR UNKNOWN INDICATION
     Route: 048

REACTIONS (8)
  - Chronic obstructive pulmonary disease [Not Recovered/Not Resolved]
  - Insurance issue [Unknown]
  - Emphysema [Not Recovered/Not Resolved]
  - Malaise [Recovered/Resolved]
  - Upper respiratory tract infection [Recovered/Resolved]
  - Therapy interrupted [Unknown]
  - Pneumonia [Recovered/Resolved]
  - Confusional state [Not Recovered/Not Resolved]

NARRATIVE: CASE EVENT DATE: 2019
